FAERS Safety Report 19102126 (Version 1)
Quarter: 2021Q2

REPORT INFORMATION
  Report Type: Other
  Country: IT (occurrence: IT)
  Receive Date: 20210407
  Receipt Date: 20210407
  Transmission Date: 20210717
  Serious: Yes (Death)
  Sender: FDA-Public Use
  Company Number: IT-ROCHE-2801494

PATIENT

DRUGS (8)
  1. SOFOSBUVIR [Suspect]
     Active Substance: SOFOSBUVIR
     Indication: HEPATITIS C
     Dosage: UNK
     Route: 065
  2. LEDIPASVIR [Suspect]
     Active Substance: LEDIPASVIR
     Indication: HEPATITIS C
     Dosage: UNK
     Route: 065
  3. MINE [MESNA] [Suspect]
     Active Substance: MESNA
  4. MINE [ETOPOSIDE] [Suspect]
     Active Substance: ETOPOSIDE
     Indication: DIFFUSE LARGE B-CELL LYMPHOMA STAGE IV
     Dosage: 2ND?LINE IMMUNO?CHEMOTHERAPY (I?CT)
     Route: 065
  5. MINE [IFOSFAMIDE] [Suspect]
     Active Substance: IFOSFAMIDE
  6. MABTHERA [Suspect]
     Active Substance: RITUXIMAB
     Indication: DIFFUSE LARGE B-CELL LYMPHOMA STAGE IV
     Dosage: 1ST?LINE IMMUNO?CHEMOTHERAPY (I?CT)
     Route: 065
  7. CHOP [Suspect]
     Active Substance: CYCLOPHOSPHAMIDE\DOXORUBICIN\PREDNISONE\VINCRISTINE
     Indication: DIFFUSE LARGE B-CELL LYMPHOMA STAGE IV
     Dosage: 1ST?LINE IMMUNO?CHEMOTHERAPY (I?CT)
     Route: 065
  8. MINE [MITOXANTRONE] [Suspect]
     Active Substance: MITOXANTRONE HYDROCHLORIDE

REACTIONS (2)
  - Diffuse large B-cell lymphoma recurrent [Fatal]
  - Disease progression [Fatal]
